FAERS Safety Report 12677528 (Version 2)
Quarter: 2016Q3

REPORT INFORMATION
  Report Type: Spontaneous
  Country: JP (occurrence: JP)
  Receive Date: 20160823
  Receipt Date: 20160831
  Transmission Date: 20161109
  Serious: No
  Sender: FDA-Public Use
  Company Number: JP-JNJFOC-20160817045

PATIENT
  Age: 8 Decade
  Sex: Female

DRUGS (3)
  1. PREDNISOLONE. [Concomitant]
     Active Substance: PREDNISOLONE
     Route: 065
  2. REMICADE [Suspect]
     Active Substance: INFLIXIMAB
     Indication: COLITIS ULCERATIVE
     Route: 042
  3. 5-ASA [Concomitant]
     Active Substance: MESALAMINE
     Route: 065

REACTIONS (1)
  - Pneumatosis intestinalis [Recovered/Resolved]
